FAERS Safety Report 8943385 (Version 2)
Quarter: 2012Q4

REPORT INFORMATION
  Report Type: 
  Country: US (occurrence: US)
  Receive Date: 20121204
  Receipt Date: 20121212
  Transmission Date: 20130627
  Serious: No
  Sender: FDA-Public Use
  Company Number: US-VERTEX PHARMACEUTICALS INC.-2012-025267

PATIENT
  Age: 53 Year
  Sex: Female
  Weight: 95 kg

DRUGS (9)
  1. INCIVEK [Suspect]
     Indication: HEPATITIS C
     Dosage: 750 mg, tid
     Route: 048
     Dates: start: 20120914
  2. RIBASPHERE [Suspect]
     Indication: HEPATITIS C
     Dosage: 800 mg, bid
     Route: 048
     Dates: start: 20120914, end: 201211
  3. RIBASPHERE [Suspect]
     Dosage: 600 mg in am and 400 mg in pm
     Route: 048
     Dates: start: 201211
  4. PEGASYS [Suspect]
     Indication: HEPATITIS C
     Dosage: 180 ?g, qw
     Route: 058
     Dates: start: 20120914
  5. LISINOPRIL [Concomitant]
     Indication: HYPERTENSION
     Dosage: 25 mg, qd
     Route: 048
  6. OMEPRAZOLE [Concomitant]
     Indication: GASTROOESOPHAGEAL REFLUX DISEASE
     Dosage: 40 mg, qd
     Route: 048
  7. MULTIVITAMIN                       /00097801/ [Concomitant]
     Dosage: UNK, qd
  8. HYDROCHLOROTHIAZIDE [Concomitant]
     Dosage: 25 mg, qd
  9. PRILOSEC                           /00661201/ [Concomitant]
     Dosage: 20 mg, qd

REACTIONS (8)
  - Adverse event [Not Recovered/Not Resolved]
  - Loss of consciousness [Not Recovered/Not Resolved]
  - Fatigue [Unknown]
  - Rash pruritic [Not Recovered/Not Resolved]
  - Haemorrhoids [Not Recovered/Not Resolved]
  - Pruritus generalised [Not Recovered/Not Resolved]
  - Anal pruritus [Not Recovered/Not Resolved]
  - Anorectal discomfort [Not Recovered/Not Resolved]
